FAERS Safety Report 7376636-5 (Version None)
Quarter: 2011Q1

REPORT INFORMATION
  Report Type: 
  Country: None (occurrence: None)
  Receive Date: 20110325
  Receipt Date: 20110316
  Transmission Date: 20110831
  Serious: Yes (Other)
  Sender: FDA-Public Use
  Company Number: AR-ASTRAZENECA-2011SE15560

PATIENT
  Age: 67 Year
  Sex: Female

DRUGS (1)
  1. ROSUVASTATIN [Suspect]
     Indication: BLOOD CHOLESTEROL INCREASED
     Route: 048
     Dates: end: 20110301

REACTIONS (2)
  - SUPRAVENTRICULAR TACHYCARDIA [None]
  - HYPOTENSION [None]
